FAERS Safety Report 24458905 (Version 1)
Quarter: 2024Q4

REPORT INFORMATION
  Report Type: Report from Study
  Country: HU (occurrence: HU)
  Receive Date: 20241018
  Receipt Date: 20241018
  Transmission Date: 20250114
  Serious: No
  Sender: ROCHE
  Company Number: HU-ROCHE-3514460

PATIENT

DRUGS (4)
  1. RITUXIMAB [Suspect]
     Active Substance: RITUXIMAB
     Indication: Nephrotic syndrome
     Dosage: RECEIVED TOTAL OF 4 DOSES OVER 6 MONTHS; DOSES 1 AND 2 ON DAYS 0 AND 7, AND IN CASE OF SUSTAINED REM
     Route: 042
  2. CYCLOPHOSPHAMIDE [Concomitant]
     Active Substance: CYCLOPHOSPHAMIDE
  3. CYCLOSPORINE [Concomitant]
     Active Substance: CYCLOSPORINE
  4. MYCOPHENOLATE MOFETIL [Concomitant]
     Active Substance: MYCOPHENOLATE MOFETIL

REACTIONS (5)
  - Off label use [Unknown]
  - Pruritus [Unknown]
  - Urticaria [Unknown]
  - Flushing [Unknown]
  - Off label use [Unknown]
